FAERS Safety Report 4413168-8 (Version None)
Quarter: 2004Q3

REPORT INFORMATION
  Report Type: 
  Country: None (occurrence: None)
  Receive Date: 20040802
  Receipt Date: 20040610
  Transmission Date: 20050211
  Serious: Yes (Life-Threatening, Hospitalization, Other)
  Sender: FDA-Public Use
  Company Number: GB-GLAXOSMITHKLINE-B0335741A

PATIENT
  Age: 47 Year
  Sex: Male
  Weight: 101.4 kg

DRUGS (3)
  1. COMBIVIR [Suspect]
     Indication: HIV INFECTION
     Route: 048
     Dates: start: 20020708, end: 20040310
  2. EFAVIRENZ [Concomitant]
     Route: 048
  3. TENOFOVIR [Concomitant]
     Route: 048

REACTIONS (4)
  - CARDIAC FAILURE CONGESTIVE [None]
  - CARDIOMYOPATHY [None]
  - OEDEMA PERIPHERAL [None]
  - ORTHOPNOEA [None]
